FAERS Safety Report 7827452 (Version 2)
Quarter: 2013Q1

REPORT INFORMATION
  Report Type: Report from Study
  Country: GR (occurrence: GR)
  Receive Date: 20110225
  Receipt Date: 20130329
  Transmission Date: 20140127
  Serious: Yes (Death)
  Sender: FDA-Public Use
  Company Number: PHHY2011GR14067

PATIENT
  Age: 77 Year
  Sex: Male

DRUGS (7)
  1. ZOLEDRONATE [Suspect]
     Dosage: 4/5 MG/ML, UNK
     Route: 042
     Dates: start: 20090421, end: 20100719
  2. FENTANYL [Concomitant]
     Dosage: 62 MG/H PER 72 HOURS
     Dates: start: 20100521
  3. PANTOPRAZOLE [Concomitant]
     Dosage: 40 MG, UNK
     Dates: start: 20100521
  4. DEXAMETHAZONE [Concomitant]
     Indication: CACHEXIA
     Dosage: 2 MG, UNK
     Dates: start: 20100521
  5. GABAPENTIN [Concomitant]
     Indication: PAIN
     Dosage: 800 MG, UNK
     Dates: start: 20100719
  6. MELOXICAM [Concomitant]
     Indication: PAIN
     Dosage: 15 MG, UNK
     Dates: start: 20100521
  7. AMITRIPTYLINE WITH PERPHENAZINE [Concomitant]
     Indication: AFFECTIVE DISORDER
     Dosage: UNK UKN, UNK

REACTIONS (2)
  - Multi-organ failure [Fatal]
  - Malignant neoplasm progression [Fatal]
